FAERS Safety Report 4952582-9 (Version None)
Quarter: 2006Q1

REPORT INFORMATION
  Report Type: 
  Country: None (occurrence: None)
  Receive Date: 20060317
  Receipt Date: 20060301
  Transmission Date: 20060701
  Serious: Yes (Other)
  Sender: FDA-Public Use
  Company Number: GB200603000372

PATIENT
  Age: 24 Year
  Sex: Female

DRUGS (2)
  1. FLUOXETINE HCL [Suspect]
     Dosage: 20 MG, ORAL
     Route: 048
     Dates: start: 20050701, end: 20060104
  2. ACYCLOVIR [Concomitant]

REACTIONS (2)
  - CD4 LYMPHOCYTES ABNORMAL [None]
  - NEUTROPENIA [None]
